FAERS Safety Report 7651443-4 (Version None)
Quarter: 2011Q3

REPORT INFORMATION
  Report Type: 
  Country: None (occurrence: None)
  Receive Date: 20110802
  Receipt Date: 20110726
  Transmission Date: 20111222
  Serious: Yes (Other)
  Sender: FDA-Public Use
  Company Number: PHHY2011US11759

PATIENT
  Sex: Female

DRUGS (9)
  1. LORAZEPAM [Suspect]
     Dosage: UNK
  2. ATENOLOL [Concomitant]
     Dosage: UNK
  3. ASPIRIN [Concomitant]
     Dosage: 81 MG,DAILY
  4. TYLENOL-500 [Concomitant]
     Dosage: UNK
  5. FEMARA [Suspect]
     Dosage: 1 DF, QD
     Route: 048
  6. OXYCODONE HCL [Suspect]
     Dosage: UNK
  7. CHEMOTHERAPEUTICS NOS [Suspect]
     Dosage: UNK UKN, UNK
  8. TEMAZEPAM [Concomitant]
     Dosage: 30 MG, UNK
  9. MEGESTROL ACETATE [Concomitant]
     Dosage: UNK

REACTIONS (7)
  - ARTHRALGIA [None]
  - INSOMNIA [None]
  - ABDOMINAL DISCOMFORT [None]
  - FATIGUE [None]
  - NIGHT SWEATS [None]
  - MYALGIA [None]
  - OVARIAN CANCER [None]
